FAERS Safety Report 17398569 (Version 7)
Quarter: 2020Q2

REPORT INFORMATION
  Report Type: Report from Study
  Country: DE (occurrence: DE)
  Receive Date: 20200210
  Receipt Date: 20200501
  Transmission Date: 20200713
  Serious: Yes (Death, Hospitalization)
  Sender: FDA-Public Use
  Company Number: DE-B.I. PHARMACEUTICALS,INC./RIDGEFIELD-2020-BI-007533

PATIENT
  Age: 56 Year
  Sex: Male
  Weight: 80.5 kg

DRUGS (2)
  1. VARGATEF [Suspect]
     Active Substance: NINTEDANIB
     Indication: LUNG ADENOCARCINOMA
     Route: 048
     Dates: start: 20200123, end: 20200129
  2. DOCETAXEL. [Suspect]
     Active Substance: DOCETAXEL
     Indication: LUNG ADENOCARCINOMA
     Dosage: FORM OF ADMIN.: LIQUID?DAILY DOSE: 75 MG/M2 BODY SURFACE AREA
     Route: 042
     Dates: start: 20200122

REACTIONS (2)
  - Sepsis [Fatal]
  - Neutrophil count decreased [Not Recovered/Not Resolved]

NARRATIVE: CASE EVENT DATE: 20200130
